FAERS Safety Report 4627407-1 (Version None)
Quarter: 2005Q2

REPORT INFORMATION
  Report Type: 
  Country: None (occurrence: None)
  Receive Date: 20050405
  Receipt Date: 20050325
  Transmission Date: 20051028
  Serious: Yes (Other)
  Sender: FDA-Public Use
  Company Number: 2005049905

PATIENT
  Age: 32 Year
  Sex: Female
  Weight: 83.4619 kg

DRUGS (4)
  1. NEURONTIN [Suspect]
     Indication: COMPLEX PARTIAL SEIZURES
     Dosage: 800 MG (400 MG, 2 IN 1 D)
  2. AZELASTINE HYDROCHLORIDE (AZELASTINE HYDROCHLORIDE) [Suspect]
     Indication: MULTIPLE ALLERGIES
     Dates: start: 20040101
  3. CARBAMAZEPINE (CARBAMAZEINE) [Suspect]
     Indication: COMPLEX PARTIAL SEIZURES
     Dosage: 1000 MG ( 500 MG, 2 IN 1 D)
  4. LORAZEPAM [Concomitant]

REACTIONS (7)
  - ANTICONVULSANT DRUG LEVEL INCREASED [None]
  - COMPLEX PARTIAL SEIZURES [None]
  - DISEASE RECURRENCE [None]
  - DRUG INTERACTION [None]
  - HYPERSENSITIVITY [None]
  - PETIT MAL EPILEPSY [None]
  - PHARMACEUTICAL PRODUCT COMPLAINT [None]
